FAERS Safety Report 22091462 (Version 1)
Quarter: 2023Q1

REPORT INFORMATION
  Report Type: Spontaneous
  Country: US (occurrence: US)
  Receive Date: 20230314
  Receipt Date: 20230314
  Transmission Date: 20230417
  Serious: No
  Sender: FDA-Public Use
  Company Number: US-GSK-US2023AMR038152

PATIENT
  Sex: Female

DRUGS (1)
  1. NUCALA [Suspect]
     Active Substance: MEPOLIZUMAB
     Indication: Asthma
     Dosage: UNK
     Dates: start: 202009

REACTIONS (8)
  - Injection site pain [Recovered/Resolved]
  - Stress [Unknown]
  - Asthma [Unknown]
  - Weight decreased [Unknown]
  - Wrong technique in product usage process [Unknown]
  - Labelled drug-food interaction issue [Unknown]
  - Product dispensing error [Unknown]
  - Therapeutic response unexpected [Unknown]
